FAERS Safety Report 21240218 (Version 1)
Quarter: 2022Q3

REPORT INFORMATION
  Report Type: Report from Study
  Country: EG (occurrence: EG)
  Receive Date: 20220822
  Receipt Date: 20220822
  Transmission Date: 20221026
  Serious: Yes (Other)
  Sender: FDA-Public Use
  Company Number: EG-NOVARTISPH-NVSC2022EG186283

PATIENT
  Age: 40 Year
  Sex: Female

DRUGS (7)
  1. GILENYA [Suspect]
     Active Substance: FINGOLIMOD HYDROCHLORIDE
     Indication: Multiple sclerosis
     Dosage: 0.5 MG, QD
     Route: 048
     Dates: start: 202110
  2. GILENYA [Suspect]
     Active Substance: FINGOLIMOD HYDROCHLORIDE
     Dosage: 0.5 MG, QOD
     Route: 048
     Dates: start: 202202
  3. .ALPHA.-LIPOIC ACID [Concomitant]
     Active Substance: .ALPHA.-LIPOIC ACID
     Indication: Hypoaesthesia
     Dosage: 600 UNK, QD
     Route: 065
     Dates: start: 2014
  4. BETOLVEX [Concomitant]
     Indication: Nervousness
     Dosage: UNK, QW
     Route: 065
     Dates: start: 2014
  5. SELENIUM [Concomitant]
     Active Substance: SELENIUM
     Indication: Supplementation therapy
     Dosage: UNK, QD
     Route: 065
     Dates: start: 202207
  6. OXITROPIL [Concomitant]
     Indication: Blood disorder
     Dosage: 1200 UNK
     Route: 065
     Dates: start: 202207
  7. CONVENTIN [Concomitant]
     Indication: Hypoaesthesia
     Dosage: ONE TABLET WHEN NEEDED
     Route: 065

REACTIONS (4)
  - Dysstasia [Recovering/Resolving]
  - Fatigue [Recovering/Resolving]
  - White blood cell count decreased [Unknown]
  - Off label use [Unknown]

NARRATIVE: CASE EVENT DATE: 20220201
